FAERS Safety Report 6088685-8 (Version None)
Quarter: 2009Q1

REPORT INFORMATION
  Report Type: 
  Country: None (occurrence: None)
  Receive Date: 20090224
  Receipt Date: 20090211
  Transmission Date: 20090719
  Serious: Yes (Hospitalization)
  Sender: FDA-Public Use
  Company Number: FR-BRISTOL-MYERS SQUIBB COMPANY-14116164

PATIENT
  Age: 43 Year
  Sex: Female

DRUGS (4)
  1. LYSODREN [Suspect]
     Indication: ADRENOCORTICAL CARCINOMA
     Route: 048
     Dates: start: 20050201
  2. CISPLATYL [Suspect]
     Indication: ADRENOCORTICAL CARCINOMA
     Route: 042
     Dates: start: 20060913, end: 20060914
  3. DOXORUBICIN HCL [Suspect]
     Indication: ADRENOCORTICAL CARCINOMA
     Route: 042
     Dates: start: 20060911, end: 20060911
  4. VEPESID [Suspect]
     Indication: ADRENOCORTICAL CARCINOMA
     Dates: start: 20060912, end: 20060914

REACTIONS (1)
  - THROMBOCYTOPENIA [None]
